FAERS Safety Report 18431605 (Version 1)
Quarter: 2020Q4

REPORT INFORMATION
  Report Type: Spontaneous
  Country: US (occurrence: US)
  Receive Date: 20201027
  Receipt Date: 20201027
  Transmission Date: 20210114
  Serious: Yes (Other)
  Sender: FDA-Public Use
  Company Number: None

PATIENT
  Age: 89 Year
  Sex: Female
  Weight: 72.59 kg

DRUGS (14)
  1. ACETAMINOPHEN. [Concomitant]
     Active Substance: ACETAMINOPHEN
  2. KLONOPIN [Concomitant]
     Active Substance: CLONAZEPAM
  3. PROCHLORPERAZINE. [Concomitant]
     Active Substance: PROCHLORPERAZINE
  4. XGEVA [Concomitant]
     Active Substance: DENOSUMAB
  5. NINLARO [Suspect]
     Active Substance: IXAZOMIB CITRATE
     Indication: PLASMA CELL MYELOMA
     Dosage: ?          OTHER FREQUENCY:DAYS 1,8, AND 15;?
     Route: 048
     Dates: start: 20200220, end: 20201027
  6. TRAMADOL. [Concomitant]
     Active Substance: TRAMADOL
  7. OXYCODONE [Concomitant]
     Active Substance: OXYCODONE
  8. BACTRIM DS [Concomitant]
     Active Substance: SULFAMETHOXAZOLE\TRIMETHOPRIM
  9. DEXAMETHASONE. [Concomitant]
     Active Substance: DEXAMETHASONE
  10. HYDROCODONE [Concomitant]
     Active Substance: HYDROCODONE
  11. ASPIRIN. [Concomitant]
     Active Substance: ASPIRIN
  12. PANTOPRAZOLE [Concomitant]
     Active Substance: PANTOPRAZOLE
  13. SENNA [Concomitant]
     Active Substance: SENNA LEAF\SENNOSIDES\SENNOSIDES A AND B
  14. HYDROCHLOROTHIAZIDE. [Concomitant]
     Active Substance: HYDROCHLOROTHIAZIDE

REACTIONS (1)
  - Disease progression [None]

NARRATIVE: CASE EVENT DATE: 20201027
